FAERS Safety Report 8333630 (Version 2)
Quarter: 2014Q2

REPORT INFORMATION
  Report Type: Spontaneous
  Country: US (occurrence: US)
  Receive Date: 20111130
  Receipt Date: 20140520
  Transmission Date: 20141212
  Serious: Yes (Hospitalization, Other)
  Sender: FDA-Public Use
  Company Number: US201004000731

PATIENT
  Age: 68 Year
  Sex: Male
  Weight: 81.63 kg

DRUGS (21)
  1. BYETTA PEN DISPOSABLE [Suspect]
     Route: 065
     Dates: start: 200601, end: 200903
  2. EXENATIDE UNK STRENGTH PEN, DISPOSABLE DEVICE [Concomitant]
  3. ZYVOX [Concomitant]
  4. ACTOS [Concomitant]
  5. LISINOPRIL [Concomitant]
  6. LOVASTATIN [Concomitant]
  7. MEVACOR [Concomitant]
  8. METFORMIN [Concomitant]
  9. ASPIRIN [Concomitant]
  10. MULTIVITAMINS [Concomitant]
  11. FLAGYL [Concomitant]
  12. LEVAQUIN [Concomitant]
  13. LOPRESSOR [Concomitant]
  14. INSULIN [Concomitant]
  15. PERCOCET [Concomitant]
  16. PRILOSEC [Concomitant]
  17. DILAUDID [Concomitant]
  18. GLUCAGEN [Concomitant]
  19. PROTONIX [Concomitant]
  20. LOPRESSOR [Concomitant]
  21. ZOSYN [Concomitant]

REACTIONS (4)
  - Pancreatic pseudocyst [Unknown]
  - Pancreatitis [Recovered/Resolved]
  - Pancreatitis acute [Recovering/Resolving]
  - Pancreatitis necrotising [Recovering/Resolving]
